FAERS Safety Report 8835705 (Version 4)
Quarter: 2014Q2

REPORT INFORMATION
  Report Type: Spontaneous
  Country: US (occurrence: US)
  Receive Date: 20121011
  Receipt Date: 20140411
  Transmission Date: 20141212
  Serious: No
  Sender: FDA-Public Use
  Company Number: US-ASTRAZENECA-2012SE74319

PATIENT
  Age: 88 Year
  Sex: Female
  Weight: 70.3 kg

DRUGS (10)
  1. NEXIUM [Suspect]
     Indication: GASTROOESOPHAGEAL REFLUX DISEASE
     Route: 048
     Dates: start: 2010, end: 201403
  2. LIPITOR [Concomitant]
  3. CYMBALTA [Concomitant]
     Indication: MENTAL DISORDER
  4. SERTRALINE [Concomitant]
     Indication: MENTAL DISORDER
  5. AMBIEN [Concomitant]
     Indication: MENTAL DISORDER
  6. CLONAZEPAM [Concomitant]
     Indication: MENTAL DISORDER
  7. PHENERGAN [Concomitant]
     Indication: ABDOMINAL PAIN UPPER
  8. LIDOCAINE [Concomitant]
     Indication: ANAESTHESIA PROCEDURE
  9. CELEBREX [Concomitant]
     Indication: ARTHRITIS
  10. OTC MED [Concomitant]
     Indication: GASTROOESOPHAGEAL REFLUX DISEASE

REACTIONS (9)
  - Hypoacusis [Unknown]
  - Memory impairment [Unknown]
  - Body height decreased [Unknown]
  - Back pain [Unknown]
  - Nodule [Unknown]
  - Peripheral swelling [Unknown]
  - Abdominal discomfort [Unknown]
  - Arthralgia [Unknown]
  - Drug dose omission [Unknown]
